FAERS Safety Report 6093319-2 (Version None)
Quarter: 2009Q1

REPORT INFORMATION
  Report Type: 
  Country: None (occurrence: None)
  Receive Date: 20090220
  Receipt Date: 20090211
  Transmission Date: 20090719
  Serious: Yes (Death, Hospitalization)
  Sender: FDA-Public Use
  Company Number: GXKR2009CN01849

PATIENT
  Age: 14 Year
  Sex: Male

DRUGS (6)
  1. METHYLPREDNISOLONE 4MG TAB [Suspect]
     Indication: IMMUNOSUPPRESSION
     Dosage: 500 MG,; 250 MG, IV BOLUS; 100 MG, IV BOLUS
     Route: 040
  2. MYCOPHENOLATE MOFETIL [Suspect]
     Indication: IMMUNOSUPPRESSION
  3. TACROLIMUS [Suspect]
     Indication: IMMUNOSUPPRESSION
  4. STEROIDS NOS (NO INGREDIENTS/SUBSTANCES) [Suspect]
     Indication: TRANSPLANT REJECTION
  5. MUROMONAB-CD3 (MURONOMAB-CD3) [Suspect]
     Indication: IMMUNOSUPPRESSION
  6. THYMOGLOBULIN [Suspect]
     Indication: IMMUNOSUPPRESSION

REACTIONS (12)
  - APHASIA [None]
  - BRAIN INJURY [None]
  - COMA [None]
  - CULTURE URINE POSITIVE [None]
  - ESCHERICHIA INFECTION [None]
  - HAEMORRHAGE [None]
  - KLEBSIELLA INFECTION [None]
  - MUCOSAL ULCERATION [None]
  - PYELONEPHRITIS [None]
  - RENAL FAILURE ACUTE [None]
  - SEPSIS [None]
  - TRANSPLANT REJECTION [None]
